FAERS Safety Report 4878087-1 (Version None)
Quarter: 2006Q1

REPORT INFORMATION
  Report Type: 
  Country: None (occurrence: None)
  Receive Date: 20060110
  Receipt Date: 20051227
  Transmission Date: 20060701
  Serious: No
  Sender: FDA-Public Use
  Company Number: RS005705-BR

PATIENT
  Age: 50 Year
  Sex: Female
  Weight: 68.3 kg

DRUGS (1)
  1. RABEPRAZOLE SODIUM [Suspect]
     Indication: GASTRIC PH DECREASED
     Dosage: 20 MG,  1 IN 1 D, ORAL
     Route: 048
     Dates: start: 20051220, end: 20051223

REACTIONS (4)
  - FATIGUE [None]
  - NEURITIS [None]
  - PARALYSIS [None]
  - SOMNOLENCE [None]
